FAERS Safety Report 6441056-4 (Version None)
Quarter: 2009Q4

REPORT INFORMATION
  Report Type: 
  Country: None (occurrence: None)
  Receive Date: 20091113
  Receipt Date: 20091113
  Transmission Date: 20100525
  Serious: Yes (Other)
  Sender: FDA-Public Use
  Company Number: None

PATIENT
  Age: 52 Year
  Sex: Female

DRUGS (1)
  1. DURAGESIC-50 [Suspect]

REACTIONS (3)
  - APPLICATION SITE RASH [None]
  - DRUG WITHDRAWAL SYNDROME [None]
  - PRODUCT QUALITY ISSUE [None]
